FAERS Safety Report 8965280 (Version 1)
Quarter: 2012Q4

REPORT INFORMATION
  Report Type: 
  Country: DE (occurrence: DE)
  Receive Date: 20121213
  Receipt Date: 20121213
  Transmission Date: 20130627
  Serious: Yes (Hospitalization)
  Sender: FDA-Public Use
  Company Number: DE-ROCHE-1167530

PATIENT
  Age: 50 Year
  Sex: Female

DRUGS (8)
  1. PEGASYS [Suspect]
     Indication: HEPATITIS C
     Route: 065
     Dates: start: 2005
  2. PEGASYS [Suspect]
     Route: 065
     Dates: start: 201203
  3. COPEGUS [Suspect]
     Indication: HEPATITIS C
     Route: 065
     Dates: start: 2005
  4. COPEGUS [Suspect]
     Route: 065
     Dates: start: 201203
  5. TELAPREVIR [Suspect]
     Indication: PRODUCT USED FOR UNKNOWN INDICATION
     Route: 065
     Dates: start: 201203
  6. L-POLAMIDON [Concomitant]
     Route: 065
  7. TRUVADA [Concomitant]
     Indication: HIV INFECTION
  8. KALETRA [Concomitant]
     Indication: HIV INFECTION

REACTIONS (8)
  - Intracranial pressure increased [Unknown]
  - Somnolence [Unknown]
  - Disorientation [Recovering/Resolving]
  - Leukopenia [Recovered/Resolved]
  - Anaemia [Recovered/Resolved]
  - Thrombocytopenia [Recovering/Resolving]
  - Strabismus [Unknown]
  - No therapeutic response [Unknown]
